FAERS Safety Report 14974369 (Version 2)
Quarter: 2018Q2

REPORT INFORMATION
  Report Type: Spontaneous
  Country: DE (occurrence: DE)
  Receive Date: 20180605
  Receipt Date: 20180612
  Transmission Date: 20180711
  Serious: Yes (Hospitalization)
  Sender: FDA-Public Use
  Company Number: DE-TEVA-2018-DE-902198

PATIENT
  Age: 69 Year
  Sex: Male
  Weight: 60 kg

DRUGS (11)
  1. KREON [Concomitant]
     Active Substance: PANCRELIPASE
     Dosage: 4000 IU (INTERNATIONAL UNIT) DAILY; 1000 IE, 1-2-1-0
     Route: 048
  2. ALLOPURINOL. [Concomitant]
     Active Substance: ALLOPURINOL
     Dosage: 300 MILLIGRAM DAILY; 300 MG, 0-0-1-0
     Route: 048
  3. VIGANTOLETTEN [Concomitant]
     Active Substance: CHOLECALCIFEROL
     Dosage: 1000 IU (INTERNATIONAL UNIT) DAILY; 1000 IE, 1-0-0-0
     Route: 048
  4. PANTOZOL [Concomitant]
     Active Substance: PANTOPRAZOLE SODIUM
     Dosage: 20 MILLIGRAM DAILY; 20 MG, 1-0-0-0
     Route: 048
  5. ASPIRIN. [Concomitant]
     Active Substance: ASPIRIN
     Dosage: 100 MILLIGRAM DAILY; 100 MG, 0-1-0-0
     Route: 048
  6. BISOPROLOL [Suspect]
     Active Substance: BISOPROLOL
     Dosage: 2.5 MILLIGRAM DAILY; 2.5 MG, 1-0-0-0
     Route: 048
  7. RAMIPRIL. [Suspect]
     Active Substance: RAMIPRIL
     Dosage: 2.5 MILLIGRAM DAILY; 5 MG, 0.5-0-0-0
     Route: 048
  8. OPIUM TINCTURE [Concomitant]
     Active Substance: MORPHINE
     Dosage: 160 GTT DAILY; 40 TROPFEN, 1-1-1-1
     Route: 048
  9. KALIUM [Concomitant]
     Active Substance: POTASSIUM CHLORIDE
     Dosage: 6 DOSAGE FORMS DAILY; 2-2-2-0
     Route: 048
  10. LOPERAMIDE [Concomitant]
     Active Substance: LOPERAMIDE
     Dosage: 8 MILLIGRAM DAILY; 2 MG, 1-1-1-1
     Route: 048
  11. PREDNISOLONE. [Concomitant]
     Active Substance: PREDNISOLONE
     Dosage: 7.5 MILLIGRAM DAILY; 7.5 MG, 1-0-0-0
     Route: 048

REACTIONS (2)
  - Speech disorder [Recovering/Resolving]
  - General physical health deterioration [Recovering/Resolving]
